FAERS Safety Report 9772153 (Version 1)
Quarter: 2013Q4

REPORT INFORMATION
  Report Type: Spontaneous
  Country: US (occurrence: US)
  Receive Date: 20131219
  Receipt Date: 20131219
  Transmission Date: 20140711
  Serious: Yes (Other)
  Sender: FDA-Public Use
  Company Number: US-PERRIGO-13US012654

PATIENT
  Age: 3 Year
  Sex: Male
  Weight: 16.33 kg

DRUGS (2)
  1. ACETAMINOPHEN CHILD CHERRY 32 MG/ML 175 [Suspect]
     Indication: ACCIDENTAL OVERDOSE
     Dosage: 7.5 ML, SINGLE
     Route: 048
     Dates: start: 20131209, end: 20131209
  2. ACETAMINOPHEN CHILD CHERRY 32 MG/ML 175 [Suspect]
     Indication: PAIN
     Dosage: REMAINING CONTENTS OF 4 OZ BOTTLE
     Route: 048
     Dates: start: 20131209, end: 20131209

REACTIONS (3)
  - Accidental overdose [Recovered/Resolved]
  - Expired drug administered [Unknown]
  - No adverse event [Unknown]
